FAERS Safety Report 22367458 (Version 1)
Quarter: 2023Q2

REPORT INFORMATION
  Report Type: Spontaneous
  Country: GB (occurrence: GB)
  Receive Date: 20230525
  Receipt Date: 20230525
  Transmission Date: 20230722
  Serious: Yes (Hospitalization)
  Sender: FDA-Public Use
  Company Number: GB-002147023-NVSC2023GB115256

PATIENT
  Age: 30 Year
  Sex: Female

DRUGS (7)
  1. CYCLOPHOSPHAMIDE [Suspect]
     Active Substance: CYCLOPHOSPHAMIDE
     Indication: Choriocarcinoma
     Dosage: 600 MG/M2, CYCLIC, IN WEEK 2 (ARM B)
     Route: 065
  2. CISPLATIN [Suspect]
     Active Substance: CISPLATIN
     Indication: Choriocarcinoma
     Dosage: 20 MG/M2, CYCLIC, ON DAY 1 AND 2 (LOW DOSE EP)
     Route: 065
  3. METHOTREXATE [Suspect]
     Active Substance: METHOTREXATE
     Indication: Choriocarcinoma
     Dosage: UNK, CYCLIC, 1 G/2, IN WEEK 1 (ARM A) EMA(CNS)-CO
     Route: 065
  4. VINCRISTINE [Suspect]
     Active Substance: VINCRISTINE
     Indication: Choriocarcinoma
     Dosage: 0.8 MG/M2, CYCLIC, IN WEEK 2 (ARM B)
     Route: 065
  5. ETOPOSIDE [Suspect]
     Active Substance: ETOPOSIDE
     Indication: Choriocarcinoma
     Dosage: 100 MG/M2, CYCLIC (DAY 1-2), IN WEEK 1 (ARM A) EMA(CNS)-CO
     Route: 065
  6. ETOPOSIDE [Suspect]
     Active Substance: ETOPOSIDE
     Dosage: 100 MG/M2, CYCLIC, ON DAY 1AND 2 (LOW DOSE EP)
     Route: 065
  7. ACTINOMYCIN D [Suspect]
     Active Substance: DACTINOMYCIN
     Indication: Choriocarcinoma
     Dosage: 0.5 MG, CYCLIC, DAYS 1-2, IN WEEK 1 (ARM A) (EMA(CNS)-CO)
     Route: 065

REACTIONS (2)
  - Mucosal inflammation [Unknown]
  - Product use in unapproved indication [Unknown]
